FAERS Safety Report 7271834-3 (Version None)
Quarter: 2011Q1

REPORT INFORMATION
  Report Type: 
  Country: None (occurrence: None)
  Receive Date: 20110127
  Receipt Date: 20110118
  Transmission Date: 20110831
  Serious: Yes (Hospitalization, Other)
  Sender: FDA-Public Use
  Company Number: BR-001476

PATIENT
  Sex: Male

DRUGS (1)
  1. NAGLAZYME [Suspect]
     Indication: MUCOPOLYSACCHARIDOSIS VI
     Dosage: (3 VIALS PER WEEK INTRAVENOUS DRIP)
     Route: 041
     Dates: start: 20100623

REACTIONS (2)
  - INGUINAL HERNIA REPAIR [None]
  - UMBILICAL HERNIA REPAIR [None]
